FAERS Safety Report 5417079-0 (Version None)
Quarter: 2007Q3

REPORT INFORMATION
  Report Type: 
  Country: None (occurrence: None)
  Receive Date: 20070816
  Receipt Date: 20070802
  Transmission Date: 20080115
  Serious: Yes (Other)
  Sender: FDA-Public Use
  Company Number: JP-ELI_LILLY_AND_COMPANY-JP200708001197

PATIENT
  Age: 72 Year
  Sex: Male
  Weight: 56.6 kg

DRUGS (17)
  1. PEMETREXED [Suspect]
     Indication: PLEURAL MESOTHELIOMA MALIGNANT
     Dosage: 830 MG, OTHER
     Route: 042
     Dates: start: 20070205, end: 20070404
  2. CISPLATIN [Suspect]
     Indication: PLEURAL MESOTHELIOMA MALIGNANT
     Dosage: 125 MG, OTHER
     Route: 042
     Dates: start: 20070205, end: 20070302
  3. CISPLATIN [Suspect]
     Dosage: 75 MG, OTHER
     Route: 042
     Dates: start: 20070404, end: 20070411
  4. ZOLPIDEM [Concomitant]
     Dosage: 10 MG, DAILY (1/D)
     Route: 048
     Dates: end: 20070308
  5. LOXONIN [Concomitant]
     Dosage: 180 MG, DAILY (1/D)
     Route: 048
     Dates: end: 20070215
  6. MEDICON [Concomitant]
     Dosage: 90 MG, DAILY (1/D)
     Route: 048
     Dates: end: 20070315
  7. CYTOTEC [Concomitant]
     Dosage: 600 UG, DAILY (1/D)
     Route: 048
     Dates: end: 20070419
  8. URSO 250 [Concomitant]
     Dosage: 600 MG, DAILY (1/D)
     Route: 048
     Dates: end: 20070301
  9. CALONAL [Concomitant]
     Indication: CANCER PAIN
     Dosage: 600 MG, DAILY (1/D)
     Route: 048
     Dates: end: 20070420
  10. NAPROXEN [Concomitant]
     Dosage: 600 MG, DAILY (1/D)
     Route: 048
     Dates: start: 20070319, end: 20070419
  11. OXYCONTIN [Concomitant]
     Indication: CANCER PAIN
     Dosage: 10 MG, DAILY (1/D)
     Route: 048
     Dates: start: 20070329, end: 20070418
  12. SERENACE [Concomitant]
     Dosage: 2 MG, DAILY (1/D)
     Route: 048
     Dates: start: 20070329, end: 20070416
  13. DECADRON [Concomitant]
     Indication: PROPHYLAXIS
     Dosage: 8 MG, UNK
     Route: 042
     Dates: start: 20070204, end: 20070406
  14. NASEA [Concomitant]
     Indication: PROPHYLAXIS
     Dosage: 0.3 MG, UNK
     Route: 042
     Dates: start: 20070205, end: 20070407
  15. PANVITAN [Concomitant]
     Dosage: 1 MG, DAILY (1/D)
     Route: 048
     Dates: start: 20070127, end: 20070419
  16. METHYCOBAL [Concomitant]
     Dosage: 0.5 MG, OTHER
     Route: 030
     Dates: start: 20070126, end: 20070129
  17. METHYCOBAL [Concomitant]
     Dosage: 1 MG, OTHER
     Route: 030
     Dates: start: 20070310, end: 20070310

REACTIONS (3)
  - HAEMOGLOBIN DECREASED [None]
  - HEPATIC FUNCTION ABNORMAL [None]
  - LYMPHOCYTE COUNT DECREASED [None]
